FAERS Safety Report 8376701-X (Version None)
Quarter: 2012Q2

REPORT INFORMATION
  Report Type: 
  Country: None (occurrence: None)
  Receive Date: 20120518
  Receipt Date: 20120508
  Transmission Date: 20120825
  Serious: Yes (Other)
  Sender: FDA-Public Use
  Company Number: DKLU1079473

PATIENT
  Age: 43 Year
  Sex: Female

DRUGS (8)
  1. SABRIL [Suspect]
     Indication: EPILEPSY
     Dosage: 1000 MG MILLIGRAM(S), 3 IN 1 D, ORAL 1500 MG MILLIGRAM(S), 3 IN 1 D, ORAL
     Route: 048
     Dates: start: 20120404
  2. SABRIL [Suspect]
     Indication: COMPLEX PARTIAL SEIZURES
     Dosage: 1000 MG MILLIGRAM(S), 3 IN 1 D, ORAL 1500 MG MILLIGRAM(S), 3 IN 1 D, ORAL
     Route: 048
     Dates: start: 20120404
  3. ATIVAN [Concomitant]
  4. SYNTHROID [Concomitant]
  5. METHADONE HCL [Concomitant]
  6. VALIUM [Concomitant]
  7. VIMPAT [Concomitant]
  8. TOPAMAX [Concomitant]

REACTIONS (9)
  - CONDITION AGGRAVATED [None]
  - PRODUCT LABEL ISSUE [None]
  - UNDERDOSE [None]
  - ATTENTION DEFICIT/HYPERACTIVITY DISORDER [None]
  - PARANOIA [None]
  - ANXIETY [None]
  - INCORRECT DOSE ADMINISTERED [None]
  - VISUAL ACUITY REDUCED [None]
  - ABDOMINAL DISCOMFORT [None]
